FAERS Safety Report 25892169 (Version 2)
Quarter: 2025Q4

REPORT INFORMATION
  Report Type: Spontaneous
  Country: US (occurrence: None)
  Receive Date: 20251007
  Receipt Date: 20251013
  Transmission Date: 20260118
  Serious: No
  Sender: ALKERMES
  Company Number: US-ALKERMES INC.-ALK-2025-002632

PATIENT
  Age: 47 Year
  Sex: Male

DRUGS (10)
  1. VIVITROL [Suspect]
     Active Substance: NALTREXONE
     Indication: Alcohol use
     Dosage: 380 MILLIGRAM, QMO
  2. UNSPECIFIED INGREDIENT [Concomitant]
     Active Substance: UNSPECIFIED INGREDIENT
     Indication: Affective disorder
     Route: 065
  3. UNSPECIFIED INGREDIENT [Concomitant]
     Active Substance: UNSPECIFIED INGREDIENT
     Indication: Mental disorder
     Dosage: UNK
     Route: 065
  4. OLANZAPINE [Concomitant]
     Active Substance: OLANZAPINE
     Indication: Product used for unknown indication
     Dosage: 5 MILLIGRAM
     Route: 065
  5. MELATONIN [Concomitant]
     Active Substance: MELATONIN
     Indication: Product used for unknown indication
     Dosage: 3 MILLIGRAM, 2 TAB QHS
     Route: 065
  6. VITAMINS [Concomitant]
     Active Substance: VITAMINS
     Indication: Product used for unknown indication
     Dosage: UNK, QD
     Route: 065
  7. VITAMIN B [Concomitant]
     Active Substance: VITAMIN B
     Indication: Product used for unknown indication
     Dosage: 50 MILLIGRAM, QD
     Route: 065
  8. PRAZOSIN [Concomitant]
     Active Substance: PRAZOSIN
     Indication: Product used for unknown indication
     Dosage: 1 MILLIGRAM
     Route: 065
  9. MIRTAZAPINE [Concomitant]
     Active Substance: MIRTAZAPINE
     Indication: Product used for unknown indication
     Dosage: 30 MILLIGRAM
     Route: 065
  10. GABAPENTIN [Concomitant]
     Active Substance: GABAPENTIN
     Indication: Product used for unknown indication
     Dosage: 400 MILLIGRAM, TID
     Route: 065

REACTIONS (5)
  - Product physical issue [Recovered/Resolved]
  - Syringe issue [Recovered/Resolved]
  - Wrong technique in product usage process [Recovered/Resolved]
  - Wrong technique in device usage process [Recovered/Resolved]
  - Product colour issue [Recovered/Resolved]

NARRATIVE: CASE EVENT DATE: 20250923
